FAERS Safety Report 9827548 (Version 1)
Quarter: 2014Q1

REPORT INFORMATION
  Report Type: Spontaneous
  Country: US (occurrence: US)
  Receive Date: 20140117
  Receipt Date: 20140117
  Transmission Date: 20141002
  Serious: No
  Sender: FDA-Public Use
  Company Number: US-BIOGENIDEC-2014BI001669

PATIENT
  Age: 39 Year
  Sex: Female

DRUGS (3)
  1. TECFIDERA [Suspect]
     Indication: MULTIPLE SCLEROSIS
     Route: 048
     Dates: start: 20131223
  2. AMLODIPINE BESYLATE [Concomitant]
  3. IBUPROFEN [Concomitant]

REACTIONS (1)
  - Paraesthesia [Unknown]
